FAERS Safety Report 5726693-4 (Version None)
Quarter: 2008Q2

REPORT INFORMATION
  Report Type: 
  Country: None (occurrence: None)
  Receive Date: 20080502
  Receipt Date: 20080422
  Transmission Date: 20081010
  Serious: Yes (Death)
  Sender: FDA-Public Use
  Company Number: US-PFIZER INC-2007102550

PATIENT
  Sex: Male
  Weight: 62.3 kg

DRUGS (14)
  1. LYRICA [Suspect]
     Indication: NEURALGIA
     Route: 048
  2. ALL OTHER THERAPEUTIC PRODUCTS [Concomitant]
  3. ACETYLSALICYLIC ACID SRT [Concomitant]
  4. FISH OIL [Concomitant]
  5. MARINOL [Concomitant]
  6. ZYPREXA [Concomitant]
  7. REMERON [Concomitant]
  8. AUGMENTIN '125' [Concomitant]
  9. PREDNISONE [Concomitant]
  10. DEPO-TESTOSTERONE [Concomitant]
  11. OXYCONTIN [Concomitant]
  12. IRON [Concomitant]
  13. VITAMIN CAP [Concomitant]
  14. RESTORIL [Concomitant]

REACTIONS (1)
  - DEATH [None]
